FAERS Safety Report 10191030 (Version 2)
Quarter: 2014Q2

REPORT INFORMATION
  Report Type: Spontaneous
  Country: US (occurrence: US)
  Receive Date: 20140523
  Receipt Date: 20140609
  Transmission Date: 20141212
  Serious: Yes (Hospitalization, Other)
  Sender: FDA-Public Use
  Company Number: US-SA-2014SA063814

PATIENT
  Age: 43 Year
  Sex: Male

DRUGS (8)
  1. FABRAZYME [Suspect]
     Indication: FABRY^S DISEASE
     Route: 042
     Dates: start: 20030722
  2. ACETAMINOPHEN [Concomitant]
     Indication: PREMEDICATION
  3. BENADRYL [Concomitant]
     Indication: PREMEDICATION
  4. PREDNISONE [Concomitant]
     Indication: PREMEDICATION
  5. SPIRONOLACTONE [Concomitant]
  6. METOPROLOL [Concomitant]
  7. LASIX [Concomitant]
     Route: 042
  8. TORSEMIDE [Concomitant]

REACTIONS (4)
  - Cardiac hypertrophy [Not Recovered/Not Resolved]
  - Ejection fraction abnormal [Unknown]
  - Oedema peripheral [Not Recovered/Not Resolved]
  - Chills [Recovered/Resolved]
